FAERS Safety Report 6575090-0 (Version None)
Quarter: 2010Q1

REPORT INFORMATION
  Report Type: 
  Country: None (occurrence: None)
  Receive Date: 20100209
  Receipt Date: 20100129
  Transmission Date: 20100710
  Serious: Yes (Hospitalization)
  Sender: FDA-Public Use
  Company Number: US-SANOFI-AVENTIS-2009SA010095

PATIENT
  Age: 77 Year
  Sex: Female
  Weight: 65.9 kg

DRUGS (20)
  1. MULTAQ [Suspect]
     Indication: ATRIAL FIBRILLATION
     Dosage: FIRST DOSE ON THURSDAY EVENING (17DEC09) AND 2 DOSES ON FRIDAY (18DEC09)
     Route: 048
     Dates: start: 20091217, end: 20091218
  2. ASPIRIN [Concomitant]
     Route: 048
  3. LUMIGAN [Concomitant]
     Indication: GLAUCOMA
     Dosage: 1 DROP BOTH EYES EVERY EVENING
     Route: 047
  4. RESTASIS [Concomitant]
     Dosage: OPTHALMIC EMULSION, 1 DROP BOTH EYES 2 TIMES A DAY
     Route: 047
  5. GENERAL NUTRIENTS [Concomitant]
     Route: 048
  6. TYLENOL-500 [Concomitant]
     Indication: PAIN
     Dosage: EVERY 6 HOURS AS NEEDED FOR PAIN
     Route: 048
  7. LOVAZA [Concomitant]
     Route: 048
  8. BIOTIN [Concomitant]
     Route: 048
  9. CALCIUM CARBONATE/VITAMIN D NOS [Concomitant]
     Route: 048
  10. MICRO-K [Concomitant]
     Route: 048
  11. CELEBREX [Concomitant]
     Indication: ARTHRITIS
     Route: 048
  12. COUMADIN [Concomitant]
     Indication: ATRIAL FIBRILLATION
     Route: 048
  13. LISINOPRIL [Concomitant]
     Indication: BLOOD PRESSURE
     Route: 048
  14. LASIX [Concomitant]
     Route: 048
  15. ROSUVASTATIN CALCIUM [Concomitant]
     Route: 048
  16. IMDUR [Concomitant]
     Dosage: IMDUR CR
     Route: 048
  17. NITROSTAT [Concomitant]
     Indication: CHEST PAIN
     Dosage: EVERY 5 MINUTES AS NEEDED FOR CHEST PAIN
     Route: 060
  18. EVISTA [Concomitant]
     Route: 048
  19. PHENERGAN HCL [Concomitant]
     Indication: NAUSEA
     Dosage: EVERY 6 HOURS AS NEEDED FOR NAUSEA
     Route: 048
  20. ZAROXOLYN [Concomitant]
     Route: 048

REACTIONS (11)
  - ALANINE AMINOTRANSFERASE INCREASED [None]
  - ANAEMIA [None]
  - ASPARTATE AMINOTRANSFERASE INCREASED [None]
  - DIZZINESS [None]
  - DYSPHONIA [None]
  - DYSPNOEA [None]
  - HAEMATOCRIT DECREASED [None]
  - HAEMOGLOBIN DECREASED [None]
  - HEPATIC ENZYME INCREASED [None]
  - NAUSEA [None]
  - PRODUCTIVE COUGH [None]
